FAERS Safety Report 6598687-0 (Version None)
Quarter: 2010Q1

REPORT INFORMATION
  Report Type: 
  Country: None (occurrence: None)
  Receive Date: 20100224
  Receipt Date: 20100205
  Transmission Date: 20100710
  Serious: No
  Sender: FDA-Public Use
  Company Number: US-BAYER-201013445NA

PATIENT
  Age: 15 Year
  Sex: Male

DRUGS (1)
  1. KOGENATE FS [Suspect]
     Indication: DRUG USE FOR UNKNOWN INDICATION
     Dates: start: 20100103

REACTIONS (1)
  - RASH [None]
